FAERS Safety Report 6811166-8 (Version None)
Quarter: 2010Q2

REPORT INFORMATION
  Report Type: 
  Country: None (occurrence: None)
  Receive Date: 20100630
  Receipt Date: 20090721
  Transmission Date: 20101027
  Serious: No
  Sender: FDA-Public Use
  Company Number: US-AMGEN-KDL357118

PATIENT
  Sex: Female
  Weight: 51.8 kg

DRUGS (7)
  1. PROCRIT [Suspect]
     Indication: RENAL FAILURE CHRONIC
     Dates: start: 20090601
  2. PLAVIX [Concomitant]
  3. ASPIRIN [Concomitant]
  4. ZOLOFT [Concomitant]
  5. UNSPECIFIED MEDICATION [Concomitant]
  6. PRILOSEC [Concomitant]
  7. SYNTHROID [Concomitant]

REACTIONS (2)
  - PAIN IN EXTREMITY [None]
  - SOMNOLENCE [None]
